FAERS Safety Report 18376747 (Version 1)
Quarter: 2020Q4

REPORT INFORMATION
  Report Type: Spontaneous
  Country: FR (occurrence: FR)
  Receive Date: 20201013
  Receipt Date: 20201013
  Transmission Date: 20210114
  Serious: Yes (Hospitalization)
  Sender: FDA-Public Use
  Company Number: FR-TEVA-2020-FR-1836979

PATIENT
  Age: 79 Year
  Sex: Male

DRUGS (16)
  1. HUMALOG [Concomitant]
     Active Substance: INSULIN LISPRO
     Dosage: 150 MG
     Route: 058
  2. ULTRA LEVURE [Concomitant]
     Active Substance: SACCHAROMYCES CEREVISIAE
     Dosage: UNSPECIFIED
     Route: 048
  3. DALACINE [Concomitant]
     Active Substance: CLINDAMYCIN
     Dosage: UNSPECIFIED
     Route: 048
     Dates: start: 20200205, end: 20200220
  4. PREGABALINE [Concomitant]
     Active Substance: PREGABALIN
     Dosage: 300 MG
     Route: 048
  5. LOVENOX [Concomitant]
     Active Substance: ENOXAPARIN SODIUM
     Dosage: UNSPECIFIED,  4000 IU ANTI-XA / 0.4 ML,
     Route: 058
  6. METFORMINE [Concomitant]
     Active Substance: METFORMIN HYDROCHLORIDE
     Dosage: 1000 MG
     Route: 048
  7. OXYNORMORO 10 MG, COMPRIME  ORODISPERSIBLE [Concomitant]
     Dosage: 4 DF
     Route: 048
  8. OXYCODONE [Concomitant]
     Active Substance: OXYCODONE
     Dosage: 60 MG
     Route: 048
  9. PRAVASTATINE SODIQUE [Suspect]
     Active Substance: PRAVASTATIN SODIUM
     Indication: PROPHYLAXIS
     Dosage: 20 MG
     Route: 048
     Dates: end: 20200211
  10. PARACETAMOL [Concomitant]
     Active Substance: ACETAMINOPHEN
     Dosage: UNSPECIFIED
     Route: 048
  11. TOUJEO [Concomitant]
     Active Substance: INSULIN GLARGINE
     Dosage: 12 IU
     Route: 058
  12. VELMETIA 50 MG/850 MG, COMPRIME PELLICULE [Concomitant]
     Dosage: 1 DF, 50 MG/850 MG
     Route: 048
  13. PREDNISONE. [Concomitant]
     Active Substance: PREDNISONE
     Dosage: 5 MG
     Route: 048
  14. NEBIVOLOL. [Concomitant]
     Active Substance: NEBIVOLOL
     Dosage: 0.25 MG
     Route: 048
  15. EXFORGE 5 MG/80 MG, COMPRIME PELLICULE [Concomitant]
     Dosage: 5 MG/80 MG,1 DF
     Route: 048
  16. KARDEGIC [Concomitant]
     Active Substance: ASPIRIN DL-LYSINE
     Dosage: 1 DF, IN SACHET
     Route: 048

REACTIONS (2)
  - Myoglobin blood increased [Recovered/Resolved]
  - Blood creatine phosphokinase increased [Recovered/Resolved]

NARRATIVE: CASE EVENT DATE: 20200211
